FAERS Safety Report 23376617 (Version 2)
Quarter: 2024Q1

REPORT INFORMATION
  Report Type: Spontaneous
  Country: CA (occurrence: CA)
  Receive Date: 20240108
  Receipt Date: 20240116
  Transmission Date: 20240409
  Serious: Yes (Other)
  Sender: FDA-Public Use
  Company Number: CA-SANDOZ-SDZ2024CA001147

PATIENT
  Sex: Female

DRUGS (9)
  1. DIAZEPAM [Suspect]
     Active Substance: DIAZEPAM
     Indication: Sleep disorder
     Dosage: 6 MG, QD
     Route: 048
  2. DIAZEPAM [Suspect]
     Active Substance: DIAZEPAM
     Indication: Seizure
  3. KETAMINE [Suspect]
     Active Substance: KETAMINE
     Dosage: UNK
     Route: 045
  4. KETAMINE [Suspect]
     Active Substance: KETAMINE
     Dosage: UNK
     Route: 045
  5. KETAMINE [Suspect]
     Active Substance: KETAMINE
     Indication: Seizure
     Dosage: UNK
     Route: 060
  6. KETAMINE [Suspect]
     Active Substance: KETAMINE
     Dosage: UNK
     Route: 065
  7. LORAZEPAM [Suspect]
     Active Substance: LORAZEPAM
     Indication: Seizure
     Dosage: 0.5 MG
     Route: 060
  8. LORAZEPAM [Suspect]
     Active Substance: LORAZEPAM
     Dosage: UNK
     Route: 060
  9. VALPROIC ACID [Concomitant]
     Active Substance: VALPROIC ACID
     Indication: Affective disorder
     Dosage: 275 MG, BID
     Route: 048

REACTIONS (3)
  - Drug dependence [Unknown]
  - Intentional overdose [Unknown]
  - Fatigue [Unknown]
